FAERS Safety Report 9482629 (Version 1)
Quarter: 2013Q3

REPORT INFORMATION
  Report Type: Spontaneous
  Country: US (occurrence: US)
  Receive Date: 20130828
  Receipt Date: 20130828
  Transmission Date: 20140515
  Serious: Yes (Other)
  Sender: FDA-Public Use
  Company Number: US-JNJFOC-20130809496

PATIENT
  Sex: 0

DRUGS (8)
  1. DOXORUBICIN [Suspect]
     Indication: B-CELL LYMPHOMA
     Route: 042
  2. RITUXIMAB [Suspect]
     Indication: B-CELL LYMPHOMA
     Route: 065
  3. CYCLOPHOSPHAMIDE [Suspect]
     Indication: B-CELL LYMPHOMA
     Route: 065
  4. ONCOVIN [Suspect]
     Indication: B-CELL LYMPHOMA
     Route: 065
  5. PREDNISONE [Suspect]
     Indication: B-CELL LYMPHOMA
     Route: 065
  6. METHOTREXATE [Suspect]
     Indication: B-CELL LYMPHOMA
     Route: 042
  7. METHOTREXATE [Suspect]
     Indication: B-CELL LYMPHOMA
     Route: 037
  8. CYTARABINE [Suspect]
     Indication: B-CELL LYMPHOMA
     Route: 042

REACTIONS (4)
  - Pain [Unknown]
  - Mucosal inflammation [Unknown]
  - Infection [Unknown]
  - Non-Hodgkin^s lymphoma recurrent [Unknown]
